FAERS Safety Report 24338349 (Version 1)
Quarter: 2024Q3

REPORT INFORMATION
  Report Type: Spontaneous
  Country: US (occurrence: US)
  Receive Date: 20240919
  Receipt Date: 20240919
  Transmission Date: 20241016
  Serious: No
  Sender: ALVOGEN
  Company Number: US-ALVOGEN-2024094879

PATIENT
  Age: 70 Year
  Sex: Male

DRUGS (1)
  1. LENALIDOMIDE [Suspect]
     Active Substance: LENALIDOMIDE
     Indication: Plasma cell myeloma
     Dosage: 14 DAYS SUPPLY?14 DAYS, ONCE A DAY
     Dates: start: 202404, end: 202404

REACTIONS (3)
  - Infection [Recovering/Resolving]
  - Rash [Recovering/Resolving]
  - Off label use [Unknown]

NARRATIVE: CASE EVENT DATE: 20240401
